FAERS Safety Report 8321186-2 (Version None)
Quarter: 2012Q2

REPORT INFORMATION
  Report Type: 
  Country: None (occurrence: None)
  Receive Date: 20120430
  Receipt Date: 20120423
  Transmission Date: 20120825
  Serious: No
  Sender: FDA-Public Use
  Company Number: US-BAYER-2012-040765

PATIENT
  Age: 11 Year
  Sex: Male
  Weight: 79 kg

DRUGS (3)
  1. NAPROXEN SODIUM [Suspect]
     Indication: MUSCULOSKELETAL STIFFNESS
     Dosage: 2 U, QD
     Route: 048
     Dates: start: 20120423, end: 20120423
  2. ZYRTEC [Concomitant]
  3. PRILOSEC [Concomitant]

REACTIONS (4)
  - NO ADVERSE EVENT [None]
  - NAUSEA [None]
  - VOMITING [None]
  - ABDOMINAL DISCOMFORT [None]
